FAERS Safety Report 5968889-2 (Version None)
Quarter: 2008Q4

REPORT INFORMATION
  Report Type: 
  Country: None (occurrence: None)
  Receive Date: 20081119
  Receipt Date: 20081008
  Transmission Date: 20090506
  Serious: No
  Sender: FDA-Public Use
  Company Number: WAES 0810USA02300

PATIENT

DRUGS (3)
  1. JANUVIA [Suspect]
     Dosage: PO
     Route: 048
     Dates: start: 20080420
  2. GLYSET [Concomitant]
  3. METFORMIN HCL [Concomitant]

REACTIONS (6)
  - GASTROINTESTINAL PAIN [None]
  - MUSCLE SPASMS [None]
  - NIGHT SWEATS [None]
  - PAIN IN EXTREMITY [None]
  - SLEEP DISORDER [None]
  - WEIGHT INCREASED [None]
